FAERS Safety Report 22021859 (Version 1)
Quarter: 2023Q1

REPORT INFORMATION
  Report Type: Spontaneous
  Country: US (occurrence: None)
  Receive Date: 20230218
  Receipt Date: 20230218
  Transmission Date: 20230417
  Serious: Yes (unspecified)
  Sender: FDA-Public Use
  Company Number: None

PATIENT
  Age: 37 Year
  Sex: Female
  Weight: 57.8 kg

DRUGS (5)
  1. POTASSIUM CHLORIDE [Suspect]
     Active Substance: POTASSIUM CHLORIDE
     Indication: Electrolyte substitution therapy
     Dosage: 30 MEQ OTHER  INTRAVENOUS DRIP
     Route: 041
     Dates: start: 20230119, end: 20230119
  2. SODIUM CHLORIDE [Suspect]
     Active Substance: SODIUM CHLORIDE
     Indication: Electrolyte substitution therapy
     Dosage: 1000ML ONCE INTRAVENOUS DRIP
     Route: 041
     Dates: start: 20230119, end: 20230119
  3. Pantoprazole injection 40 mg [Concomitant]
     Dates: start: 20230118, end: 20230119
  4. Diphenhydramine injection 12.5 mg q6h PRN [Concomitant]
     Dates: start: 20230113, end: 20230119
  5. Hydromorphone injection 0.5 mg q4h PRN [Concomitant]
     Dates: start: 20230115, end: 20230119

REACTIONS (11)
  - Infusion site erythema [None]
  - Infusion site pain [None]
  - Infusion site warmth [None]
  - Infusion site reaction [None]
  - Wound [None]
  - Injury [None]
  - Infection [None]
  - Infusion site hypoaesthesia [None]
  - Infusion related reaction [None]
  - Infusion site extravasation [None]
  - Bacterial infection [None]

NARRATIVE: CASE EVENT DATE: 20230119
